FAERS Safety Report 8007663-2 (Version None)
Quarter: 2011Q4

REPORT INFORMATION
  Report Type: 
  Country: None (occurrence: None)
  Receive Date: 20111206
  Receipt Date: 20111128
  Transmission Date: 20120403
  Serious: Yes (Hospitalization)
  Sender: FDA-Public Use
  Company Number: 2011030462

PATIENT
  Age: 12 Year
  Sex: Female
  Weight: 71.6683 kg

DRUGS (12)
  1. FAMOTIDINE [Concomitant]
  2. PRIVIGEN [Suspect]
     Indication: OPTIC NEURITIS
     Dosage: 20 GM VIAL
     Dates: start: 20111102, end: 20111104
  3. FROVATRIPTAN SUCCINATE [Suspect]
     Indication: MIGRAINE
  4. MAXALT [Suspect]
  5. VITAMIN D [Concomitant]
  6. ACETAMINOPHEN [Concomitant]
  7. PRIVIGEN [Suspect]
     Indication: OPTIC NEURITIS
     Dosage: 10 GM VIAL
     Dates: start: 20111102, end: 20111104
  8. MULTIVITAMIN (DAILY MULTIVITAMIN) [Concomitant]
  9. IBUPROFEN [Concomitant]
  10. PRIVIGEN [Suspect]
     Indication: OPTIC NEURITIS
     Dosage: 50 MG, 3 DAYS EVERY MONTH INTRAVENOUS (NOT OTHERWISE SPECIFIED
     Route: 042
     Dates: start: 20110122
  11. TOPIRAMATE [Concomitant]
  12. MIRALAX [Concomitant]

REACTIONS (2)
  - MIGRAINE [None]
  - OFF LABEL USE [None]
